FAERS Safety Report 4776441-X (Version None)
Quarter: 2005Q3

REPORT INFORMATION
  Report Type: 
  Country: None (occurrence: None)
  Receive Date: 20050915
  Receipt Date: 20050912
  Transmission Date: 20060218
  Serious: Yes (Life-Threatening, Hospitalization)
  Sender: FDA-Public Use
  Company Number: 2004-05432

PATIENT
  Age: 79 Year
  Sex: Male

DRUGS (6)
  1. TRELSTAR DEPOT [Suspect]
     Indication: PROSTATE CANCER
     Dosage: SEE IMAGE
     Route: 030
     Dates: start: 20030328, end: 20031024
  2. TRELSTAR DEPOT [Suspect]
     Indication: PROSTATE CANCER
     Dosage: SEE IMAGE
     Route: 030
     Dates: start: 20040127, end: 20040512
  3. ZESTORETC [Concomitant]
  4. CARDIRENE (ACETYSALICYLATE LYSINE) [Concomitant]
  5. PROPAFENONE HCL [Concomitant]
  6. EUDIGOX [Concomitant]

REACTIONS (2)
  - ANAEMIA MACROCYTIC [None]
  - THROMBOCYTOPENIA [None]
